FAERS Safety Report 7818849-1 (Version None)
Quarter: 2011Q4

REPORT INFORMATION
  Report Type: 
  Country: None (occurrence: None)
  Receive Date: 20111018
  Receipt Date: 20111014
  Transmission Date: 20120403
  Serious: Yes (Death, Hospitalization, Other)
  Sender: FDA-Public Use
  Company Number: US-BRISTOL-MYERS SQUIBB COMPANY-16077539

PATIENT
  Age: 68 Year
  Sex: Male

DRUGS (8)
  1. FISH OIL [Concomitant]
  2. YERVOY [Suspect]
     Indication: METASTATIC MALIGNANT MELANOMA
     Dosage: 200MG/40ML 917824 30APR14 50MG/ML 917821 EXP: 31JAN14
     Route: 042
     Dates: start: 20110825
  3. COUMADIN [Concomitant]
     Indication: ATRIAL FIBRILLATION
  4. DEXAMETHASONE [Concomitant]
  5. PACERONE [Concomitant]
  6. VITAMIN E [Concomitant]
  7. ASCORBIC ACID [Concomitant]
  8. PRAVASTATIN SODIUM [Concomitant]

REACTIONS (5)
  - NAUSEA [None]
  - CEREBRAL HAEMORRHAGE [None]
  - DIZZINESS [None]
  - FALL [None]
  - LACERATION [None]
